FAERS Safety Report 18356734 (Version 1)
Quarter: 2020Q4

REPORT INFORMATION
  Report Type: Spontaneous
  Country: US (occurrence: US)
  Receive Date: 20201007
  Receipt Date: 20201007
  Transmission Date: 20210114
  Serious: No
  Sender: FDA-Public Use
  Company Number: US-SPROUT PHARMACEUTICALS, INC.-2019SP000083

PATIENT
  Sex: Female
  Weight: 73.55 kg

DRUGS (1)
  1. ADDYI [Suspect]
     Active Substance: FLIBANSERIN
     Indication: LIBIDO DECREASED
     Dates: start: 201907, end: 201909

REACTIONS (2)
  - Product use in unapproved indication [Recovered/Resolved]
  - Pollakiuria [Recovered/Resolved]
